FAERS Safety Report 18670113 (Version 3)
Quarter: 2022Q1

REPORT INFORMATION
  Report Type: Spontaneous
  Country: US (occurrence: US)
  Receive Date: 20201228
  Receipt Date: 20220314
  Transmission Date: 20220423
  Serious: Yes (Other)
  Sender: FDA-Public Use
  Company Number: US-GLAXOSMITHKLINE-US2020GSK256513

PATIENT
  Sex: Female

DRUGS (4)
  1. ZANTAC [Suspect]
     Active Substance: RANITIDINE HYDROCHLORIDE
     Indication: Product used for unknown indication
     Dosage: 150 MG, TID (WITH EACH MEAL)
     Route: 065
     Dates: start: 201601, end: 201905
  2. ZANTAC [Suspect]
     Active Substance: RANITIDINE HYDROCHLORIDE
     Indication: Product used for unknown indication
     Dosage: 150 MG, TID (WITH EACH MEAL)
     Route: 065
     Dates: start: 201601, end: 201905
  3. RANITIDINE [Suspect]
     Active Substance: RANITIDINE
     Indication: Product used for unknown indication
     Dosage: 150 MG, TID (WITH EACH MEAL)
     Route: 065
     Dates: start: 201601, end: 201905
  4. RANITIDINE [Suspect]
     Active Substance: RANITIDINE
     Indication: Product used for unknown indication
     Dosage: 150 MG, TID  (WITH EACH MEAL)
     Route: 065
     Dates: start: 201601, end: 201905

REACTIONS (2)
  - Hepatic cancer [Unknown]
  - Gastric cancer [Unknown]
